FAERS Safety Report 5120557-5 (Version None)
Quarter: 2006Q4

REPORT INFORMATION
  Report Type: 
  Country: None (occurrence: None)
  Receive Date: 20061002
  Receipt Date: 20060919
  Transmission Date: 20070319
  Serious: Yes (Death)
  Sender: FDA-Public Use
  Company Number: 056-C5013-06081293

PATIENT
  Age: 77 Year
  Sex: Male

DRUGS (10)
  1. CC-5013 (LENALIDOMIDE) (CAPSULES) [Suspect]
     Indication: MULTIPLE MYELOMA
     Dosage: 25 MG, 1 IN 1 D, ORAL
     Route: 048
     Dates: start: 20060802, end: 20060807
  2. DEXAMETHASONE TAB [Suspect]
     Dates: start: 20060802, end: 20060805
  3. LEXOMIL (BROMAZEPAM) (TABLETS) [Concomitant]
  4. LASILIX 20 (FUROSEMIDE) (TABLETS) [Concomitant]
  5. PREVISCAN (FLUINDIONE) (TABLETS) [Concomitant]
  6. OMEPRAZOLE 20 (OMEPRAZOLE) [Concomitant]
  7. BACTRIM FORTE (BACTRIM) (TABLETS) [Concomitant]
  8. TRANSIPEG (MACROGOL) [Concomitant]
  9. SKENAN LP (MORPHINE SULFATE) [Concomitant]
  10. ACTISKENAN 10 (MORPHINE SULFATE) [Concomitant]

REACTIONS (2)
  - MALIGNANT NEOPLASM PROGRESSION [None]
  - MULTIPLE MYELOMA [None]
